FAERS Safety Report 14220670 (Version 4)
Quarter: 2017Q4

REPORT INFORMATION
  Report Type: Spontaneous
  Country: US (occurrence: US)
  Receive Date: 20171124
  Receipt Date: 20171229
  Transmission Date: 20180321
  Serious: Yes (Other)
  Sender: FDA-Public Use
  Company Number: US-009507513-1711USA000201

PATIENT
  Age: 27 Year
  Sex: Female
  Weight: 129.71 kg

DRUGS (2)
  1. VALACYCLOVIR HYDROCHLORIDE. [Concomitant]
     Active Substance: VALACYCLOVIR HYDROCHLORIDE
     Indication: HERPES SIMPLEX
     Dosage: 1500 MG, QD, AS NEEDED
     Route: 048
     Dates: start: 20170705
  2. NEXPLANON [Suspect]
     Active Substance: ETONOGESTREL
     Indication: CONTRACEPTION
     Dosage: 1 UNIT, UNK
     Route: 059
     Dates: start: 20171017

REACTIONS (13)
  - Complication associated with device [Not Recovered/Not Resolved]
  - Complication of device removal [Not Recovered/Not Resolved]
  - Device deployment issue [Not Recovered/Not Resolved]
  - Nervousness [Unknown]
  - Abdominal pain [Unknown]
  - Limb discomfort [Recovered/Resolved]
  - Migration of implanted drug [Not Recovered/Not Resolved]
  - Headache [Unknown]
  - Nausea [Unknown]
  - Pain [Unknown]
  - Dizziness [Unknown]
  - Metrorrhagia [Unknown]
  - Vertigo [Unknown]

NARRATIVE: CASE EVENT DATE: 2017
